FAERS Safety Report 4368041-0 (Version None)
Quarter: 2004Q2

REPORT INFORMATION
  Report Type: 
  Country: None (occurrence: None)
  Receive Date: 20040527
  Receipt Date: 20040405
  Transmission Date: 20050107
  Serious: No
  Sender: FDA-Public Use
  Company Number: 205711

PATIENT
  Age: 54 Year
  Sex: Female

DRUGS (2)
  1. RAPTIVA [Suspect]
     Indication: PSORIASIS
     Dosage: 0.4 ML UNK, , SUBCUTANEOUS
     Route: 058
     Dates: start: 20040402, end: 20040402
  2. RAPTIVA [Suspect]
     Indication: PSORIASIS
     Dosage: 0.4 ML UNK, , SUBCUTANEOUS
     Route: 058
     Dates: start: 20040401

REACTIONS (5)
  - BACK PAIN [None]
  - CHILLS [None]
  - INSOMNIA [None]
  - MUSCLE CRAMP [None]
  - PYREXIA [None]
